FAERS Safety Report 7194301-4 (Version None)
Quarter: 2010Q4

REPORT INFORMATION
  Report Type: 
  Country: None (occurrence: None)
  Receive Date: 20101223
  Receipt Date: 20101103
  Transmission Date: 20110411
  Serious: No
  Sender: FDA-Public Use
  Company Number: US-BAUSCH-2010BL006226

PATIENT
  Age: 69 Year
  Sex: Male

DRUGS (2)
  1. ZIRGAN [Suspect]
     Indication: HERPES OPHTHALMIC
     Route: 047
     Dates: start: 20101102, end: 20101102
  2. DECADRON [Concomitant]
     Indication: HYPERSENSITIVITY

REACTIONS (5)
  - BURNING SENSATION [None]
  - DYSPHONIA [None]
  - ORAL DISCOMFORT [None]
  - THROAT IRRITATION [None]
  - VISION BLURRED [None]
